FAERS Safety Report 5234754-1 (Version None)
Quarter: 2007Q1

REPORT INFORMATION
  Report Type: 
  Country: None (occurrence: None)
  Receive Date: 20070209
  Receipt Date: 20070130
  Transmission Date: 20070707
  Serious: Yes (Life-Threatening, Hospitalization, Disabling)
  Sender: FDA-Public Use
  Company Number: NL-ELI_LILLY_AND_COMPANY-NL200702000030

PATIENT
  Age: 65 Year
  Sex: Male
  Weight: 84 kg

DRUGS (5)
  1. TADALAFIL [Suspect]
     Indication: ERECTILE DYSFUNCTION
     Dosage: 10 MG,
     Dates: start: 20051222
  2. METFORMIN HCL [Concomitant]
     Dosage: 500 MG, 2/D
     Dates: start: 20051222
  3. LIPITOR [Concomitant]
     Dosage: 40 MG, DAILY (1/D)
     Dates: start: 20051222
  4. LOSEC MUPS HP [Concomitant]
     Dosage: 20 MG, AS NEEDED
     Dates: start: 20060623, end: 20060723
  5. GAVISCON                                /GFR/ [Concomitant]
     Dosage: 250 MG, AS NEEDED

REACTIONS (1)
  - CEREBRAL HAEMORRHAGE [None]
